FAERS Safety Report 13054678 (Version 1)
Quarter: 2016Q4

REPORT INFORMATION
  Report Type: Report from Study
  Country: BE (occurrence: BE)
  Receive Date: 20161222
  Receipt Date: 20161222
  Transmission Date: 20170207
  Serious: Yes (Hospitalization)
  Sender: FDA-Public Use
  Company Number: PHHY2016BE176283

PATIENT
  Age: 74 Year
  Sex: Male
  Weight: 107 kg

DRUGS (7)
  1. FYCOMPA [Suspect]
     Active Substance: PERAMPANEL
     Dosage: 2 MG, QD
     Route: 048
     Dates: start: 20161115
  2. FYCOMPA [Suspect]
     Active Substance: PERAMPANEL
     Dosage: 4 MG, QD
     Route: 048
     Dates: start: 20161024, end: 20161114
  3. TEGRETOL [Suspect]
     Active Substance: CARBAMAZEPINE
     Indication: EPILEPSY
     Dosage: 800 MG, QD
     Route: 065
     Dates: start: 20151007, end: 20161201
  4. LAMOTRIGINE. [Concomitant]
     Active Substance: LAMOTRIGINE
     Indication: PRODUCT USED FOR UNKNOWN INDICATION
     Route: 065
  5. TEGRETOL [Suspect]
     Active Substance: CARBAMAZEPINE
     Dosage: 600 MG, QD
     Route: 065
     Dates: start: 20161202
  6. LAMICTAL [Concomitant]
     Active Substance: LAMOTRIGINE
     Indication: PRODUCT USED FOR UNKNOWN INDICATION
     Route: 065
  7. FYCOMPA [Suspect]
     Active Substance: PERAMPANEL
     Indication: EPILEPSY
     Dosage: 2 MG, QD
     Route: 048
     Dates: start: 20161012, end: 20161023

REACTIONS (2)
  - Vertigo [Recovered/Resolved]
  - Tremor [Recovered/Resolved]

NARRATIVE: CASE EVENT DATE: 20161025
